FAERS Safety Report 12588418 (Version 2)
Quarter: 2019Q1

REPORT INFORMATION
  Report Type: Spontaneous
  Country: US (occurrence: US)
  Receive Date: 20160725
  Receipt Date: 20190121
  Transmission Date: 20190417
  Serious: No
  Sender: FDA-Public Use
  Company Number: US-JNJFOC-20160614136

PATIENT
  Sex: Female

DRUGS (1)
  1. TYLENOL EXTRA STRENGTH [Suspect]
     Active Substance: ACETAMINOPHEN
     Indication: PRODUCT USED FOR UNKNOWN INDICATION
     Route: 048
     Dates: end: 20160614

REACTIONS (4)
  - Reaction to excipient [Not Recovered/Not Resolved]
  - Rash generalised [Not Recovered/Not Resolved]
  - Product storage error [Unknown]
  - Pruritus [Not Recovered/Not Resolved]
